FAERS Safety Report 19138738 (Version 3)
Quarter: 2021Q4

REPORT INFORMATION
  Report Type: Spontaneous
  Country: ES (occurrence: ES)
  Receive Date: 20210415
  Receipt Date: 20211115
  Transmission Date: 20220303
  Serious: Yes (Other)
  Sender: FDA-Public Use
  Company Number: ES-SA-SAC20210324000093

PATIENT
  Age: 79 Year
  Sex: Female
  Weight: 52.6 kg

DRUGS (16)
  1. ACETAMINOPHEN [Suspect]
     Active Substance: ACETAMINOPHEN
     Indication: Extremity contracture
     Dosage: UNK
     Route: 065
     Dates: start: 202103
  2. ACETAMINOPHEN [Suspect]
     Active Substance: ACETAMINOPHEN
     Indication: Limb discomfort
  3. ACETAMINOPHEN [Suspect]
     Active Substance: ACETAMINOPHEN
     Indication: Pain in extremity
  4. TRAMADOL [Suspect]
     Active Substance: TRAMADOL
     Indication: Limb discomfort
     Dosage: UNK UNK, TWO TIMES A DAY  (EARLY MORNING AND EVENING)
     Route: 065
     Dates: start: 202103
  5. TRAMADOL [Suspect]
     Active Substance: TRAMADOL
     Indication: Pain in extremity
  6. TRAMADOL [Suspect]
     Active Substance: TRAMADOL
     Indication: Extremity contracture
  7. INSULIN GLARGINE [Suspect]
     Active Substance: INSULIN GLARGINE
     Indication: Type 2 diabetes mellitus
     Dosage: 30 INTERNATIONAL UNIT, ONCE A DAY
     Route: 058
     Dates: start: 20210319
  8. DIAZEPAM [Concomitant]
     Active Substance: DIAZEPAM
     Indication: Pain in extremity
     Dosage: 1 DOSAGE FORM, ONCE A DAY (AFTER DINNER)
     Route: 065
  9. DIAZEPAM [Concomitant]
     Active Substance: DIAZEPAM
     Indication: Extremity contracture
  10. DIAZEPAM [Concomitant]
     Active Substance: DIAZEPAM
     Indication: Limb discomfort
  11. DEXKETOPROFEN TROMETAMOL [Concomitant]
     Active Substance: DEXKETOPROFEN TROMETAMOL
     Indication: Limb discomfort
     Dosage: UNK
     Route: 065
     Dates: start: 20210319
  12. DAPAGLIFLOZIN [Concomitant]
     Active Substance: DAPAGLIFLOZIN
     Indication: Type 2 diabetes mellitus
     Dosage: 1 DOSAGE FORM, ONCE A DAY
     Route: 065
  13. DAPAGLIFLOZIN [Concomitant]
     Active Substance: DAPAGLIFLOZIN
     Dosage: 10 MILLIGRAM, ONCE A DAY
     Route: 065
  14. INSULIN ASPART [Concomitant]
     Active Substance: INSULIN ASPART
     Indication: Product used for unknown indication
     Dosage: UNK
     Route: 065
  15. OZEMPIC [Concomitant]
     Active Substance: SEMAGLUTIDE
     Indication: Type 2 diabetes mellitus
     Dosage: UNK, 1 WEEK
     Route: 065
  16. VICTOZA [Concomitant]
     Active Substance: LIRAGLUTIDE
     Indication: Product used for unknown indication
     Dosage: UNK
     Route: 065

REACTIONS (9)
  - Pain in extremity [Recovering/Resolving]
  - Listless [Unknown]
  - Poor quality sleep [Unknown]
  - Sciatica [Unknown]
  - Limb discomfort [Recovering/Resolving]
  - Gait disturbance [Unknown]
  - Extremity contracture [Recovering/Resolving]
  - Hyperglycaemia [Unknown]
  - Blood glucose increased [Recovering/Resolving]

NARRATIVE: CASE EVENT DATE: 20210301
